FAERS Safety Report 8957996 (Version 2)
Quarter: 2012Q4

REPORT INFORMATION
  Report Type: 
  Country: RO (occurrence: RO)
  Receive Date: 20121211
  Receipt Date: 20121220
  Transmission Date: 20130627
  Serious: Yes (Other)
  Sender: FDA-Public Use
  Company Number: RO-UCBSA-072656

PATIENT
  Age: 51 Year
  Sex: Male
  Weight: 95 kg

DRUGS (7)
  1. VIMPAT [Suspect]
     Indication: TEMPORAL LOBE EPILEPSY
     Dosage: DAILY DOSE: 400 MG
     Route: 048
     Dates: start: 201203, end: 2012
  2. VIMPAT [Suspect]
     Indication: TEMPORAL LOBE EPILEPSY
     Dates: start: 2012
  3. LEVETIRACETAM [Concomitant]
     Dosage: 2-3 YEARS
     Route: 048
  4. OXCARBAMAZEPINE [Concomitant]
     Dosage: 5 YEARS
  5. LAMICTAL [Concomitant]
     Dosage: 1 YEAR
  6. LAMICTAL [Concomitant]
     Dosage: 100 MG
  7. LAMICTAL [Concomitant]
     Dosage: UNKNOWN DOSE

REACTIONS (2)
  - Amblyopia [Recovered/Resolved]
  - Drug ineffective [Unknown]
